FAERS Safety Report 11079596 (Version 2)
Quarter: 2015Q2

REPORT INFORMATION
  Report Type: Spontaneous
  Country: JP (occurrence: JP)
  Receive Date: 20150430
  Receipt Date: 20150513
  Transmission Date: 20150821
  Serious: Yes (Hospitalization, Other)
  Sender: FDA-Public Use
  Company Number: JP-INTERMUNE, INC.-201504IM014204

PATIENT
  Age: 72 Year
  Sex: Male

DRUGS (4)
  1. PIRESPA (PIRFENIDONE) [Suspect]
     Active Substance: PIRFENIDONE
     Indication: IDIOPATHIC PULMONARY FIBROSIS
     Dosage: 600 MG
     Route: 048
     Dates: start: 20150409, end: 20150412
  2. BAYASPIRIN [Suspect]
     Active Substance: ASPIRIN
     Indication: PROPHYLAXIS
     Route: 048
  3. BASEN [Concomitant]
     Active Substance: VOGLIBOSE
     Indication: DIABETES MELLITUS
     Dosage: 0.6 MG
     Route: 048
  4. LIVALO [Concomitant]
     Active Substance: PITAVASTATIN CALCIUM
     Indication: HYPERLIPIDAEMIA
     Dosage: 1 MG
     Route: 048

REACTIONS (1)
  - Haemorrhagic erosive gastritis [Recovered/Resolved]

NARRATIVE: CASE EVENT DATE: 20150413
